FAERS Safety Report 4553935-3 (Version None)
Quarter: 2005Q1

REPORT INFORMATION
  Report Type: 
  Country: None (occurrence: None)
  Receive Date: 20050118
  Receipt Date: 20050105
  Transmission Date: 20050727
  Serious: Yes (Death)
  Sender: FDA-Public Use
  Company Number: US-MERCK-0501USA00501

PATIENT
  Age: 73 Year
  Sex: Male
  Weight: 74 kg

DRUGS (1)
  1. VIOXX [Suspect]
     Indication: NECK PAIN
     Route: 048
     Dates: end: 20040901

REACTIONS (5)
  - ARTERIOSCLEROSIS [None]
  - CARDIOMEGALY [None]
  - HEPATITIS [None]
  - HYPERTENSIVE HEART DISEASE [None]
  - SUDDEN DEATH [None]
